FAERS Safety Report 4669498-8 (Version None)
Quarter: 2005Q2

REPORT INFORMATION
  Report Type: 
  Country: None (occurrence: None)
  Receive Date: 20050520
  Receipt Date: 20050508
  Transmission Date: 20051028
  Serious: Yes (Disabling, Other)
  Sender: FDA-Public Use
  Company Number: 2005050481

PATIENT
  Age: 53 Year
  Sex: Male
  Weight: 92.0802 kg

DRUGS (2)
  1. VISINE EYE DROPS [Suspect]
     Indication: OCULAR HYPERAEMIA
     Dosage: 2  DROPS ONCE, OPHTHALMIC
     Route: 047
     Dates: start: 20050324, end: 20050324
  2. VERAPAMIL [Concomitant]

REACTIONS (8)
  - BLOOD PRESSURE INCREASED [None]
  - EYE PAIN [None]
  - HEART RATE INCREASED [None]
  - OPTIC ISCHAEMIC NEUROPATHY [None]
  - PARAESTHESIA [None]
  - RESPIRATORY RATE INCREASED [None]
  - VISION BLURRED [None]
  - VISUAL ACUITY REDUCED [None]
